FAERS Safety Report 7261593-2 (Version None)
Quarter: 2011Q1

REPORT INFORMATION
  Report Type: 
  Country: None (occurrence: None)
  Receive Date: 20110124
  Receipt Date: 20110124
  Transmission Date: 20110831
  Serious: No
  Sender: FDA-Public Use
  Company Number: None

PATIENT
  Sex: Female
  Weight: 74.8435 kg

DRUGS (2)
  1. TRIAD ALCOHOL PREP PADS 70% ALCOHOL CAT.NO.10-3001 NDC50730-3001-0 [Suspect]
     Indication: DIABETES MELLITUS
     Dosage: 70% 4 TIMES DAILY TOP
     Route: 061
     Dates: start: 20090101, end: 20110123
  2. WALGREENS ALCOHOL PREP PADS 70% ALCOHOL WALGREENS SWAB [Suspect]
     Indication: DIABETES MELLITUS
     Dosage: 70% 4 TIMES DAILY TOP
     Route: 061
     Dates: start: 20070312, end: 20090101

REACTIONS (5)
  - DRY SKIN [None]
  - PRODUCT QUALITY ISSUE [None]
  - SKIN CHAPPED [None]
  - HAEMORRHAGE [None]
  - PAIN IN EXTREMITY [None]
